FAERS Safety Report 6249201-0 (Version None)
Quarter: 2009Q2

REPORT INFORMATION
  Report Type: 
  Country: None (occurrence: None)
  Receive Date: 20090629
  Receipt Date: 20090623
  Transmission Date: 20091009
  Serious: Yes (Death, Other)
  Sender: FDA-Public Use
  Company Number: PHEH2009US06702

PATIENT
  Sex: Male
  Weight: 106.4 kg

DRUGS (7)
  1. EXJADE [Suspect]
     Indication: MYELODYSPLASTIC SYNDROME
     Dosage: 2000 MG, QD
     Route: 048
     Dates: start: 20050612
  2. EXJADE [Suspect]
     Indication: IRON OVERLOAD
  3. LOTREL [Concomitant]
     Indication: HYPERTENSION
  4. BENICAR [Concomitant]
  5. VITAMIN B-12 [Concomitant]
  6. VITAMIN B6 [Concomitant]
  7. FLOMAX [Concomitant]
     Indication: BENIGN PROSTATIC HYPERPLASIA

REACTIONS (2)
  - CRANIOTOMY [None]
  - DEATH [None]
